FAERS Safety Report 16122654 (Version 1)
Quarter: 2019Q1

REPORT INFORMATION
  Report Type: Spontaneous
  Country: US (occurrence: US)
  Receive Date: 20190222
  Receipt Date: 20190222
  Transmission Date: 20190418
  Serious: Yes (Other)
  Sender: FDA-Public Use
  Company Number: None

PATIENT
  Age: 75 Year
  Sex: Female
  Weight: 68.04 kg

DRUGS (8)
  1. REBIF [Suspect]
     Active Substance: INTERFERON BETA-1A
     Indication: MULTIPLE SCLEROSIS
     Dosage: ?          OTHER STRENGTH:44 MCG/.5ML;OTHER FREQUENCY:1X3XAWEEK;OTHER ROUTE:INJECTION?
  2. BACLOFEN 10MG [Concomitant]
     Active Substance: BACLOFEN
  3. DICLOFENAC SODIUM 75MG [Concomitant]
     Active Substance: DICLOFENAC SODIUM
  4. D-3 [Concomitant]
     Active Substance: CHOLECALCIFEROL
  5. GABAPENTIN 300MG [Concomitant]
     Active Substance: GABAPENTIN
  6. ASPIRIN 81MG [Concomitant]
     Active Substance: ASPIRIN
  7. VITAMIN B12 [Concomitant]
     Active Substance: CYANOCOBALAMIN
  8. SUPER B COMPLEX [Concomitant]
     Active Substance: CYANOCOBALAMIN\DEXPANTHENOL\NIACINAMIDE\PYRIDOXINE HYDROCHLORIDE\RIBOFLAVIN 5^-PHOSPHATE SODIUM\THIAMINE HYDROCHLORIDE\VITAMIN B COMPLEX

REACTIONS (2)
  - Alopecia [None]
  - Hair texture abnormal [None]
